FAERS Safety Report 6750288-7 (Version None)
Quarter: 2010Q2

REPORT INFORMATION
  Report Type: 
  Country: None (occurrence: None)
  Receive Date: 20100601
  Receipt Date: 20100524
  Transmission Date: 20101027
  Serious: Yes (Other)
  Sender: FDA-Public Use
  Company Number: GB-ABBOTT-10P-167-0647054-00

PATIENT
  Age: 52 Year
  Sex: Male
  Weight: 74 kg

DRUGS (1)
  1. ERYTHROMYCIN [Suspect]
     Indication: BURSITIS
     Route: 048
     Dates: start: 20100323, end: 20100323

REACTIONS (2)
  - HEADACHE [None]
  - VISION BLURRED [None]
